FAERS Safety Report 7186741-4 (Version None)
Quarter: 2010Q4

REPORT INFORMATION
  Report Type: 
  Country: None (occurrence: None)
  Receive Date: 20101222
  Receipt Date: 20101217
  Transmission Date: 20110411
  Serious: Yes (Other)
  Sender: FDA-Public Use
  Company Number: BR-PFIZER INC-2010175276

PATIENT
  Age: 25 Year
  Sex: Female
  Weight: 56 kg

DRUGS (3)
  1. PROVERA [Suspect]
     Indication: AMENORRHOEA
     Dosage: 1X/DAY
     Route: 048
     Dates: start: 20101215
  2. PROPRANOLOL [Concomitant]
     Dosage: UNK
  3. GINKGO BILOBA [Concomitant]
     Dosage: UNK

REACTIONS (8)
  - BREAST MILK DISCOLOURATION [None]
  - DEPRESSION [None]
  - DIZZINESS [None]
  - GALACTORRHOEA [None]
  - LABYRINTHITIS [None]
  - NERVOUSNESS [None]
  - SOMNOLENCE [None]
  - YELLOW SKIN [None]
